FAERS Safety Report 23468175 (Version 1)
Quarter: 2024Q1

REPORT INFORMATION
  Report Type: Spontaneous
  Country: CA (occurrence: CA)
  Receive Date: 20240201
  Receipt Date: 20240201
  Transmission Date: 20240410
  Serious: Yes (Other)
  Sender: FDA-Public Use
  Company Number: CA-MLMSERVICE-20240122-4788282-1

PATIENT
  Age: 45 Year
  Sex: Male

DRUGS (9)
  1. STELARA [Suspect]
     Active Substance: USTEKINUMAB
     Indication: Colitis ulcerative
     Dosage: ESCALATED TO EVERY 4 WEEKS
     Route: 058
     Dates: start: 202005, end: 202009
  2. STELARA [Suspect]
     Active Substance: USTEKINUMAB
     Dosage: 90 MG EVERY 8 WEEKS
     Route: 058
     Dates: start: 202009, end: 202101
  3. REMICADE [Suspect]
     Active Substance: INFLIXIMAB
     Indication: Colitis ulcerative
     Dosage: INDUCTION
     Route: 041
     Dates: start: 202101
  4. REMICADE [Suspect]
     Active Substance: INFLIXIMAB
     Dosage: MAINTENANCE REGIMEN
     Route: 041
     Dates: start: 2021
  5. VEDOLIZUMAB [Suspect]
     Active Substance: VEDOLIZUMAB
     Indication: Colitis ulcerative
     Route: 065
     Dates: start: 2016, end: 2018
  6. VEDOLIZUMAB [Suspect]
     Active Substance: VEDOLIZUMAB
     Dosage: ESCALATED TO EVERY 4 WEEKS
     Route: 065
     Dates: start: 2018, end: 202005
  7. AZATHIOPRINE [Suspect]
     Active Substance: AZATHIOPRINE
     Indication: Colitis ulcerative
     Dosage: FOR OVER 10 YEARS
     Route: 065
     Dates: start: 2005, end: 202102
  8. AZATHIOPRINE [Suspect]
     Active Substance: AZATHIOPRINE
     Indication: Colitis ulcerative
  9. MESALAMINE [Concomitant]
     Active Substance: MESALAMINE
     Indication: Colitis ulcerative
     Dates: start: 2005

REACTIONS (4)
  - Malacoplakia gastrointestinal [Recovered/Resolved]
  - Clostridium difficile infection [Unknown]
  - Drug ineffective [Unknown]
  - Off label use [Unknown]

NARRATIVE: CASE EVENT DATE: 20180101
